FAERS Safety Report 17493286 (Version 1)
Quarter: 2020Q1

REPORT INFORMATION
  Report Type: Spontaneous
  Country: US (occurrence: US)
  Receive Date: 20200303
  Receipt Date: 20200303
  Transmission Date: 20200409
  Serious: No
  Sender: FDA-Public Use
  Company Number: US-AMNEAL PHARMACEUTICALS-2019-IPXL-00462

PATIENT
  Age: 61 Year
  Sex: Male
  Weight: 81 kg

DRUGS (3)
  1. RYTARY [Suspect]
     Active Substance: CARBIDOPA\LEVODOPA
     Dosage: 4 DOSAGE FORM (4PILLS EVERY 4 HOURS FOUR TIMES A DAY)
     Route: 048
     Dates: start: 201601
  2. RYTARY [Suspect]
     Active Substance: CARBIDOPA\LEVODOPA
     Indication: PARKINSON^S DISEASE
     Dosage: 1 DOSAGE FORM, QID
     Route: 048
  3. KLONOPIN [Concomitant]
     Active Substance: CLONAZEPAM
     Indication: SLEEP DISORDER
     Dosage: 1.5 MILLIGRAM, BEDTIME
     Route: 065

REACTIONS (4)
  - Hypotension [Recovering/Resolving]
  - Fatigue [Unknown]
  - Dizziness [Unknown]
  - Muscle rigidity [Unknown]
